FAERS Safety Report 6055567-7 (Version None)
Quarter: 2009Q1

REPORT INFORMATION
  Report Type: 
  Country: None (occurrence: None)
  Receive Date: 20090128
  Receipt Date: 20090123
  Transmission Date: 20090719
  Serious: Yes (Hospitalization)
  Sender: FDA-Public Use
  Company Number: B0556193A

PATIENT
  Age: 2 Year

DRUGS (1)
  1. PROPAFENONE HYDROCHLORIDE [Suspect]
     Indication: ATRIAL TACHYCARDIA
     Route: 048

REACTIONS (2)
  - ACCIDENTAL EXPOSURE [None]
  - GRAND MAL CONVULSION [None]
